FAERS Safety Report 18501812 (Version 1)
Quarter: 2020Q4

REPORT INFORMATION
  Report Type: Spontaneous
  Country: US (occurrence: US)
  Receive Date: 20201113
  Receipt Date: 20201113
  Transmission Date: 20210114
  Serious: Yes (Other)
  Sender: FDA-Public Use
  Company Number: US-TEVA-2020-US-1848098

PATIENT
  Sex: Female

DRUGS (11)
  1. COPAXONE [Suspect]
     Active Substance: GLATIRAMER ACETATE
     Indication: MULTIPLE SCLEROSIS
     Route: 065
  2. VITAMIN D3 [Concomitant]
     Active Substance: CHOLECALCIFEROL
  3. BACLOFEN. [Concomitant]
     Active Substance: BACLOFEN
  4. MODAFINIL. [Concomitant]
     Active Substance: MODAFINIL
  5. DULOXETINE. [Concomitant]
     Active Substance: DULOXETINE
  6. PIROXICAM. [Concomitant]
     Active Substance: PIROXICAM
  7. OXYBUTYN [Concomitant]
  8. HYDROXYCHLOROQUINE [Concomitant]
     Active Substance: HYDROXYCHLOROQUINE
  9. MULTIVITAMIN [Concomitant]
     Active Substance: VITAMINS
  10. TOPIRAMATE. [Concomitant]
     Active Substance: TOPIRAMATE
  11. FERROUS SULFATE. [Concomitant]
     Active Substance: FERROUS SULFATE

REACTIONS (1)
  - Loss of consciousness [Recovered/Resolved]
